FAERS Safety Report 14250964 (Version 3)
Quarter: 2018Q1

REPORT INFORMATION
  Report Type: Report from Study
  Country: CO (occurrence: CO)
  Receive Date: 20171205
  Receipt Date: 20180312
  Transmission Date: 20180508
  Serious: Yes (Other)
  Sender: FDA-Public Use
  Company Number: CO-ASTELLAS-2017US050500

PATIENT
  Age: 27 Year
  Sex: Female
  Weight: 55 kg

DRUGS (3)
  1. MEROPENEM. [Concomitant]
     Active Substance: MEROPENEM
     Indication: PRODUCT USED FOR UNKNOWN INDICATION
     Dosage: UNK UNK, UNKNOWN FREQ.
     Route: 065
  2. TACROLIMUS. [Suspect]
     Active Substance: TACROLIMUS
     Indication: RENAL TRANSPLANT
     Route: 048
     Dates: start: 20120327
  3. TACROLIMUS. [Suspect]
     Active Substance: TACROLIMUS
     Indication: RENAL TRANSPLANT
     Route: 048
     Dates: start: 20120327

REACTIONS (7)
  - Inflammation [Not Recovered/Not Resolved]
  - Urinary tract infection [Unknown]
  - Pain [Not Recovered/Not Resolved]
  - Kidney transplant rejection [Unknown]
  - Hypersensitivity [Not Recovered/Not Resolved]
  - Medical device site haemorrhage [Not Recovered/Not Resolved]
  - Ureteric obstruction [Unknown]

NARRATIVE: CASE EVENT DATE: 20161210
